FAERS Safety Report 5134686-3 (Version None)
Quarter: 2006Q4

REPORT INFORMATION
  Report Type: 
  Country: None (occurrence: None)
  Receive Date: 20061019
  Receipt Date: 20061009
  Transmission Date: 20070319
  Serious: Yes (Disabling)
  Sender: FDA-Public Use
  Company Number: 2006124041

PATIENT
  Sex: Female

DRUGS (3)
  1. NORVASC [Suspect]
     Indication: HYPERTENSION
  2. LIPITOR [Suspect]
     Indication: BLOOD CHOLESTEROL INCREASED
  3. LESCOL [Suspect]
     Indication: BLOOD CHOLESTEROL INCREASED

REACTIONS (3)
  - ABDOMINAL PAIN [None]
  - MUSCLE DISORDER [None]
  - PAIN IN EXTREMITY [None]
